FAERS Safety Report 18323231 (Version 1)
Quarter: 2020Q3

REPORT INFORMATION
  Report Type: Spontaneous
  Country: US (occurrence: US)
  Receive Date: 20200928
  Receipt Date: 20200928
  Transmission Date: 20201103
  Serious: Yes (Hospitalization)
  Sender: FDA-Public Use
  Company Number: None

PATIENT
  Age: 42 Year
  Sex: Female

DRUGS (1)
  1. OPSUMIT [Suspect]
     Active Substance: MACITENTAN
     Indication: PULMONARY ARTERIAL HYPERTENSION
     Route: 048
     Dates: start: 20170105

REACTIONS (6)
  - Dyspnoea [None]
  - Red blood cell sedimentation rate increased [None]
  - Interstitial lung disease [None]
  - Arthralgia [None]
  - C-reactive protein increased [None]
  - Systemic lupus erythematosus [None]

NARRATIVE: CASE EVENT DATE: 20200919
